FAERS Safety Report 18901286 (Version 1)
Quarter: 2021Q1

REPORT INFORMATION
  Report Type: Spontaneous
  Country: IN (occurrence: IN)
  Receive Date: 20210217
  Receipt Date: 20210217
  Transmission Date: 20210420
  Serious: Yes (Hospitalization, Other)
  Sender: FDA-Public Use
  Company Number: IN-SUN PHARMACEUTICAL INDUSTRIES LTD-2021R1-279049

PATIENT
  Age: 36 Year
  Sex: Female
  Weight: 36 kg

DRUGS (6)
  1. SPIRONOLACTONE. [Interacting]
     Active Substance: SPIRONOLACTONE
     Indication: POSTOPERATIVE CARE
     Dosage: 25 MILLIGRAM, BID
     Route: 065
  2. DIGOXIN. [Suspect]
     Active Substance: DIGOXIN
     Indication: POSTOPERATIVE CARE
     Dosage: 0.25 MILLIGRAM, OD
     Route: 065
  3. ACENOCOUMAROL [Suspect]
     Active Substance: ACENOCOUMAROL
     Indication: POSTOPERATIVE CARE
     Dosage: UNK
     Route: 065
  4. FUROSEMIDE. [Suspect]
     Active Substance: FUROSEMIDE
     Indication: POSTOPERATIVE CARE
     Dosage: 40 MILLIGRAM, DAILY
     Route: 065
  5. FUROSEMIDE. [Suspect]
     Active Substance: FUROSEMIDE
     Dosage: 40 MILLIGRAM, BID
     Route: 065
  6. ALDACTONE [Suspect]
     Active Substance: SPIRONOLACTONE
     Indication: POSTOPERATIVE CARE
     Dosage: 100 MILLIGRAM, OD
     Route: 065

REACTIONS (1)
  - Hyperkalaemia [Recovered/Resolved]
